FAERS Safety Report 12101317 (Version 1)
Quarter: 2016Q1

REPORT INFORMATION
  Report Type: Spontaneous
  Country: CA (occurrence: CA)
  Receive Date: 20160222
  Receipt Date: 20160222
  Transmission Date: 20160526
  Serious: Yes (Other)
  Sender: FDA-Public Use
  Company Number: CA-PFIZER INC-2016091714

PATIENT
  Age: 33 Year
  Sex: Female
  Weight: 48.53 kg

DRUGS (6)
  1. REMICADE [Concomitant]
     Active Substance: INFLIXIMAB
  2. BENADRYL [Suspect]
     Active Substance: DIPHENHYDRAMINE HYDROCHLORIDE
     Indication: PREMEDICATION
     Dosage: 25.0 MG, UNK
     Route: 048
  3. PREDNISONE. [Concomitant]
     Active Substance: PREDNISONE
  4. BENADRYL [Suspect]
     Active Substance: DIPHENHYDRAMINE HYDROCHLORIDE
     Indication: FLUSHING
     Route: 042
  5. METHOTREXATE [Concomitant]
     Active Substance: METHOTREXATE
  6. SOLU-CORTEF [Suspect]
     Active Substance: HYDROCORTISONE SODIUM SUCCINATE
     Indication: PREMEDICATION
     Dosage: 100.0 MG, UNK
     Route: 042

REACTIONS (6)
  - Dyspnoea [Unknown]
  - Flushing [Unknown]
  - Oropharyngeal swelling [Unknown]
  - Peripheral swelling [Unknown]
  - Off label use [Unknown]
  - Chest discomfort [Unknown]
